FAERS Safety Report 10170895 (Version 1)
Quarter: 2014Q2

REPORT INFORMATION
  Report Type: Spontaneous
  Country: US (occurrence: None)
  Receive Date: 20140513
  Receipt Date: 20140513
  Transmission Date: 20141212
  Serious: No
  Sender: FDA-Public Use
  Company Number: None

PATIENT
  Age: 79 Year
  Sex: Female
  Weight: 85.73 kg

DRUGS (1)
  1. TOVIAZ PFIZER [Suspect]
     Indication: POLLAKIURIA
     Dosage: 4 MG 1 DAILY BY MOUTH
     Route: 048
     Dates: start: 20140429

REACTIONS (3)
  - Headache [None]
  - Abdominal pain [None]
  - Gallbladder disorder [None]
